FAERS Safety Report 8546364 (Version 4)
Quarter: 2013Q2

REPORT INFORMATION
  Report Type: Spontaneous
  Country: US (occurrence: US)
  Receive Date: 20120504
  Receipt Date: 20130422
  Transmission Date: 20140414
  Serious: Yes (Death, Hospitalization, Other)
  Sender: FDA-Public Use
  Company Number: US-PFIZER INC-2012105875

PATIENT
  Age: 69 Year
  Sex: Female
  Weight: 83.9 kg

DRUGS (40)
  1. GENOTROPIN [Suspect]
     Indication: DWARFISM
     Dosage: 5 MG, DAILY
     Route: 058
     Dates: start: 20110210
  2. GENOTROPIN [Suspect]
     Indication: GROWTH HORMONE DEFICIENCY
     Dosage: 0.4 MG, 1X/DAY
     Route: 058
     Dates: start: 201102
  3. ZOFRAN [Concomitant]
     Dosage: 4 MG, EVERY 4 HOURS AS NEEDED
     Route: 048
  4. XANAX [Concomitant]
     Dosage: 0.25 MG, 3X/DAY
     Route: 048
  5. VITAMIN D [Concomitant]
     Dosage: 1 DF, 1X/DAY
     Route: 048
  6. VITAMIN D [Concomitant]
     Dosage: 5000 IU, 1X/DAY
  7. VENLAFAXINE [Concomitant]
     Dosage: 1 DF, 1X/DAY
     Route: 048
  8. SPIRIVA [Concomitant]
     Dosage: 18 UG, 1X/DAY
     Route: 055
  9. PREMARIN [Concomitant]
     Dosage: 0.625 MG, 1X/DAY
     Route: 048
  10. OXYCONTIN [Concomitant]
     Dosage: 10 MG, 3X/DAY
     Route: 048
  11. NEXIUM [Concomitant]
     Dosage: 40 MG, 2X/DAY
     Route: 048
  12. MIRTAZAPINE [Concomitant]
     Dosage: 15 MG, 1X/DAY
     Route: 048
  13. LEVOTHYROXINE [Concomitant]
     Dosage: 50 UG, 1X/DAY
     Route: 048
  14. LASIX [Concomitant]
     Dosage: 20 MG, 1X/DAY
     Route: 048
  15. INDERAL-LA [Concomitant]
     Dosage: 80 MG, 1X/DAY
     Route: 048
  16. HYDROMORPHONE [Concomitant]
     Dosage: 2-4 MG, EVERY 6 HOURS AS NEEDED
     Route: 048
  17. HYDROMORPHONE [Concomitant]
     Dosage: 5 MG, AS NEEDED
  18. GENOTROPIN MINIQUICK [Concomitant]
     Dosage: 0.5 MG, 1X/DAY
     Route: 058
  19. DOMPERIDONE [Concomitant]
     Dosage: 20 MG, UNK
     Route: 048
  20. DOMPERIDONE [Concomitant]
     Dosage: 10 MG, 1X/DAY
  21. CARAFATE [Concomitant]
     Dosage: 1 G, 4X/DAY
     Route: 048
  22. CALCIUM WITH VITAMIN D [Concomitant]
     Dosage: 1 DF, 1X/DAY
     Route: 048
  23. ATIVAN [Concomitant]
     Dosage: 0.5 MG, 3X/DAY
     Route: 048
  24. ALBUTEROL [Concomitant]
     Dosage: 2 PUFF(S), EVERY 4 HOURS AS NEEDED
  25. ALBUTEROL [Concomitant]
     Dosage: 3 ML, EVERY 6 HOURS AS NEEDED
  26. ALBUTEROL [Concomitant]
     Dosage: UNK, AS NEEDED
  27. ADVAIR DISKUS [Concomitant]
     Dosage: 1PUFF TWICE A DAY AS NEEDED
     Route: 055
  28. LISINOPRIL [Concomitant]
     Dosage: 2.5 MG, 1X/DAY
     Route: 048
  29. LISINOPRIL [Concomitant]
     Dosage: 5 MG, 1X/DAY
  30. ALPRAZOLAM [Concomitant]
     Dosage: 0.5 MG, AS NEEDED
  31. CHLORDIAZEPOXIDE/CLIDINIUM [Concomitant]
     Dosage: CHLORDIAZEPOXIDE 5/ CLIDINIUM 2.5 MG, 3X/DAY
  32. PREMARIN VAGINAL CREAM [Concomitant]
     Dosage: UNK
  33. ESOMEPRAZOLE [Concomitant]
     Dosage: 40 MG, 2X/DAY
  34. HYOSCYAMINE [Concomitant]
     Dosage: 0.125 MG, AS NEEDED
     Route: 060
  35. MAGNESIUM CITRATE [Concomitant]
     Dosage: UNK
  36. OXYCODONE [Concomitant]
     Dosage: 15 MG, 3X/DAY (EVERY 8 HOURS)
  37. MIRALAX [Concomitant]
     Dosage: UNK
  38. PROPRANOLOL [Concomitant]
     Dosage: 20 MG, 2X/DAY
  39. TAMSULOSIN [Concomitant]
     Dosage: 0.4 MG, 2X/DAY
  40. EFFEXOR [Concomitant]
     Dosage: 75 MG, 2X/DAY

REACTIONS (3)
  - Cardiac arrest [Fatal]
  - Pneumonia aspiration [Unknown]
  - Insulin-like growth factor decreased [Unknown]
